FAERS Safety Report 5275352-3 (Version None)
Quarter: 2007Q1

REPORT INFORMATION
  Report Type: 
  Country: None (occurrence: None)
  Receive Date: 20070326
  Receipt Date: 20070314
  Transmission Date: 20070707
  Serious: Yes (Hospitalization)
  Sender: FDA-Public Use
  Company Number: US-BRISTOL-MYERS SQUIBB COMPANY-13723010

PATIENT
  Age: 63 Year
  Sex: Male

DRUGS (17)
  1. POTASSIUM CHLORIDE [Suspect]
     Indication: ELECTROLYTE SUBSTITUTION THERAPY
     Route: 048
  2. PRINIVIL [Suspect]
     Indication: HYPERTENSION
     Route: 048
  3. SPIRONOLACTONE [Suspect]
     Indication: CARDIAC FAILURE CONGESTIVE
     Route: 048
  4. COMBIVENT [Concomitant]
  5. DARVOCET-N 100 [Concomitant]
  6. LASIX [Concomitant]
  7. ZOCOR [Concomitant]
  8. CITALOPRAM [Concomitant]
  9. HYDROXYZINE HCL [Concomitant]
  10. INSULIN [Concomitant]
  11. LEVOTHYROXINE SODIUM [Concomitant]
  12. LITHIUM CARBONATE [Concomitant]
  13. METOPROLOL SUCCINATE [Concomitant]
  14. OMEPRAZOLE [Concomitant]
  15. QUETIAPINE FUMARATE [Concomitant]
  16. TERAZOSIN HCL [Concomitant]
  17. WARFARIN SODIUM [Concomitant]

REACTIONS (8)
  - ACUTE PRERENAL FAILURE [None]
  - ASTHENIA [None]
  - ATRIOVENTRICULAR BLOCK FIRST DEGREE [None]
  - BLOOD CREATININE INCREASED [None]
  - DEHYDRATION [None]
  - DIARRHOEA [None]
  - ELECTROCARDIOGRAM QRS COMPLEX PROLONGED [None]
  - HYPERKALAEMIA [None]
